FAERS Safety Report 6259632-0 (Version None)
Quarter: 2009Q3

REPORT INFORMATION
  Report Type: 
  Country: None (occurrence: None)
  Receive Date: 20090708
  Receipt Date: 20090629
  Transmission Date: 20100115
  Serious: Yes (Death)
  Sender: FDA-Public Use
  Company Number: FR-PFIZER INC-2009195688

PATIENT

DRUGS (1)
  1. AMLOR [Suspect]

REACTIONS (1)
  - COMPLETED SUICIDE [None]
